FAERS Safety Report 5942850-6 (Version None)
Quarter: 2008Q4

REPORT INFORMATION
  Report Type: 
  Country: None (occurrence: None)
  Receive Date: 20081106
  Receipt Date: 20081030
  Transmission Date: 20090506
  Serious: Yes (Hospitalization)
  Sender: FDA-Public Use
  Company Number: US-ROCHE-593285

PATIENT
  Age: 80 Year
  Sex: Male

DRUGS (8)
  1. BONIVA [Suspect]
     Indication: OSTEOPOROSIS
     Dosage: MISSED ONE DOSE IN JULY 2008
     Route: 048
     Dates: start: 20080501
  2. BUMETANIDE [Concomitant]
  3. FOSINOPRIL SODIUM [Concomitant]
  4. LIPITOR [Concomitant]
  5. VITAMIN B-12 [Concomitant]
  6. ASPIRIN [Concomitant]
  7. CALCIUM PLUS [Concomitant]
     Dosage: CALCIUM PLUS D
  8. SYNTHROID [Concomitant]

REACTIONS (3)
  - ARTERIAL REPAIR [None]
  - DIZZINESS [None]
  - FALL [None]
